FAERS Safety Report 9191464 (Version 2)
Quarter: 2013Q2

REPORT INFORMATION
  Report Type: Spontaneous
  Country: US (occurrence: US)
  Receive Date: 20130326
  Receipt Date: 20130404
  Transmission Date: 20140414
  Serious: No
  Sender: FDA-Public Use
  Company Number: US-009507513-1303USA011442

PATIENT
  Age: 26 Year
  Sex: Male

DRUGS (5)
  1. THERAPY UNSPECIFIED [Suspect]
  2. THERAPY UNSPECIFIED [Suspect]
     Dosage: UNK
  3. VINCRISTINE SULFATE [Suspect]
     Indication: EWING^S SARCOMA
     Dosage: UNK
  4. CYCLOPHOSPHAMIDE [Suspect]
     Indication: EWING^S SARCOMA
     Dosage: UNK
  5. DACARBAZINE [Suspect]
     Indication: EWING^S SARCOMA

REACTIONS (1)
  - Nail discolouration [Unknown]
